FAERS Safety Report 6962148-7 (Version None)
Quarter: 2010Q3

REPORT INFORMATION
  Report Type: 
  Country: None (occurrence: None)
  Receive Date: 20100901
  Receipt Date: 20100901
  Transmission Date: 20110219
  Serious: Yes (Hospitalization, Other)
  Sender: FDA-Public Use
  Company Number: None

PATIENT
  Sex: Female
  Weight: 78.9259 kg

DRUGS (7)
  1. CLOZAPINE [Suspect]
     Indication: PSYCHOTIC DISORDER
     Dosage: 25MG TWICE DAILY PO
     Route: 048
     Dates: start: 20100818, end: 20100823
  2. CARBAMAZEPINE [Suspect]
     Indication: CONVULSION
     Dosage: 400MG TWICE DAILY PO A FEW MONTHS
     Route: 048
  3. FLUOXETINE [Concomitant]
  4. HALOPERIDOL [Concomitant]
  5. PHENYTOIN [Concomitant]
  6. CLONAZEPAM [Concomitant]
  7. TRAZODONE HCL [Concomitant]

REACTIONS (8)
  - DYSPNOEA [None]
  - OEDEMA PERIPHERAL [None]
  - PAIN [None]
  - PRURITUS [None]
  - PYREXIA [None]
  - RASH MACULO-PAPULAR [None]
  - TREMOR [None]
  - WHITE BLOOD CELL COUNT INCREASED [None]
